FAERS Safety Report 24910175 (Version 2)
Quarter: 2025Q3

REPORT INFORMATION
  Report Type: Spontaneous
  Country: JP (occurrence: JP)
  Receive Date: 20250131
  Receipt Date: 20250701
  Transmission Date: 20251021
  Serious: Yes (Death, Other)
  Sender: SANOFI AVENTIS
  Company Number: JP-DialogSolutions-SAAVPROD-PI737777-C1

PATIENT
  Age: 46 Year
  Sex: Female

DRUGS (4)
  1. THYMOGLOBULIN [Suspect]
     Active Substance: LAPINE T-LYMPHOCYTE IMMUNE GLOBULIN
     Indication: Transplant rejection
     Route: 065
  2. RITUXIMAB [Concomitant]
     Active Substance: RITUXIMAB
     Indication: Transplant rejection
     Route: 065
  3. BORTEZOMIB [Concomitant]
     Active Substance: BORTEZOMIB
     Indication: Transplant rejection
     Route: 065
  4. IMMUNE CELLS HUMAN [Concomitant]
     Active Substance: IMMUNE CELLS HUMAN
     Indication: Infection prophylaxis
     Route: 041

REACTIONS (2)
  - Cerebral haemorrhage [Fatal]
  - Cardiac disorder [Fatal]
